FAERS Safety Report 9617792 (Version 2)
Quarter: 2013Q4

REPORT INFORMATION
  Report Type: Spontaneous
  Country: US (occurrence: US)
  Receive Date: 20131011
  Receipt Date: 20131011
  Transmission Date: 20140711
  Serious: Yes (Hospitalization)
  Sender: FDA-Public Use
  Company Number: US-B.I. PHARMACEUTICALS,INC./RIDGEFIELD-2013-BI-13042BP

PATIENT
  Sex: Male
  Weight: 124.28 kg

DRUGS (13)
  1. PRADAXA [Suspect]
     Indication: ANTICOAGULANT THERAPY
     Dosage: 300 MG
     Dates: start: 20101120, end: 20110426
  2. PRADAXA [Suspect]
     Indication: ATRIAL FIBRILLATION
  3. TYLENOL [Concomitant]
  4. NORVASC [Concomitant]
     Dosage: 5 MG
  5. ASPIRIN [Concomitant]
     Dosage: 81 MG
  6. LASIX [Concomitant]
     Dosage: 81 MG
  7. HYDRALAZINE [Concomitant]
     Dosage: 300 MG
  8. LISINOPRIL [Concomitant]
     Dosage: 40 MG
  9. TOPROL [Concomitant]
     Dosage: 100 MG
  10. NITROGLYCERIN [Concomitant]
  11. OMEPRAZOLE [Concomitant]
     Dosage: 20 MG
  12. POTASSIUM [Concomitant]
     Dosage: 40 MEQ
  13. SIMVASTATIN [Concomitant]
     Dosage: 20 MG

REACTIONS (2)
  - Gastrointestinal haemorrhage [Recovered/Resolved]
  - Renal failure acute [Unknown]
